FAERS Safety Report 22943406 (Version 5)
Quarter: 2025Q4

REPORT INFORMATION
  Report Type: Spontaneous
  Country: IN (occurrence: IN)
  Receive Date: 20230914
  Receipt Date: 20251016
  Transmission Date: 20260119
  Serious: Yes (Death, Hospitalization, Other)
  Sender: PFIZER
  Company Number: IN-PFIZER INC-PV202300026081

PATIENT
  Age: 58 Year
  Sex: Female

DRUGS (7)
  1. LORLATINIB [Suspect]
     Active Substance: LORLATINIB
     Dosage: UNK
     Dates: start: 202212
  2. LORLATINIB [Suspect]
     Active Substance: LORLATINIB
     Dosage: 100 MG, 1X/DAY
     Route: 048
     Dates: start: 20230101, end: 20230206
  3. LORLATINIB [Suspect]
     Active Substance: LORLATINIB
     Dosage: 100 MG, ALTERNATE DAY
     Route: 048
     Dates: start: 20230207
  4. LORLATINIB [Suspect]
     Active Substance: LORLATINIB
     Dosage: 25 MG, 3X/DAY (1-1-1)
     Route: 048
  5. LORLATINIB [Suspect]
     Active Substance: LORLATINIB
     Dosage: 75 MG, 1X/DAY
     Route: 048
  6. LORLATINIB [Suspect]
     Active Substance: LORLATINIB
     Dosage: 50 MG, 1X/DAY
     Route: 048
  7. LORLATINIB [Suspect]
     Active Substance: LORLATINIB
     Dosage: 100 MG, 1X/DAY
     Route: 048
     Dates: start: 202302, end: 20251004

REACTIONS (10)
  - Death [Fatal]
  - Red blood cell transfusion [Unknown]
  - Pericardial effusion [Unknown]
  - Cerebrovascular accident [Unknown]
  - Metastases to central nervous system [Unknown]
  - Pain [Unknown]
  - Pleural effusion [Unknown]
  - Oedema peripheral [Unknown]
  - Peripheral swelling [Unknown]
  - Off label use [Unknown]

NARRATIVE: CASE EVENT DATE: 20251005
